FAERS Safety Report 6781453-0 (Version None)
Quarter: 2010Q2

REPORT INFORMATION
  Report Type: 
  Country: None (occurrence: None)
  Receive Date: 20100621
  Receipt Date: 20100614
  Transmission Date: 20101027
  Serious: Yes (Other)
  Sender: FDA-Public Use
  Company Number: GB-ROCHE-709221

PATIENT
  Age: 69 Year
  Sex: Male

DRUGS (3)
  1. CAPECITABINE [Suspect]
     Dosage: ADJUVANT CHEMOTHERAPY
     Route: 048
  2. RAMIPRIL [Concomitant]
     Indication: HYPERTENSION
  3. BENDROFLUMETHIAZIDE [Concomitant]
     Indication: HYPERTENSION

REACTIONS (1)
  - VITH NERVE PARALYSIS [None]
